FAERS Safety Report 6658678-8 (Version None)
Quarter: 2010Q1

REPORT INFORMATION
  Report Type: 
  Country: None (occurrence: None)
  Receive Date: 20100330
  Receipt Date: 20100317
  Transmission Date: 20100710
  Serious: Yes (Other)
  Sender: FDA-Public Use
  Company Number: PHEH2010US03142

PATIENT
  Sex: Female

DRUGS (3)
  1. GENTEAL PM LUBRICANT EYE OINTMENT [Suspect]
     Dosage: UNK
  2. DOXYCYCLINE [Concomitant]
     Dosage: 50 MG, UNK
  3. LOVAZA [Concomitant]

REACTIONS (2)
  - KERATOMILEUSIS [None]
  - VISUAL IMPAIRMENT [None]
